FAERS Safety Report 6422948-9 (Version None)
Quarter: 2009Q4

REPORT INFORMATION
  Report Type: 
  Country: None (occurrence: None)
  Receive Date: 20091102
  Receipt Date: 20091027
  Transmission Date: 20100525
  Serious: Yes (Other)
  Sender: FDA-Public Use
  Company Number: PHEH2009US11072

PATIENT
  Sex: Male

DRUGS (8)
  1. ENABLEX [Suspect]
     Dosage: 7.5 MG, UNK
  2. OMEPRAZOLE [Concomitant]
     Dosage: 20 MG, UNK
  3. PLAVIX [Concomitant]
     Dosage: 75 MG, UNK
  4. LIPITOR [Concomitant]
     Dosage: 5 MG, UNK
  5. ASPIRIN [Concomitant]
     Dosage: 81 MG, UNK
  6. VITAMIN B-12 [Concomitant]
     Dosage: UNK
  7. ZOLPIDEM [Concomitant]
     Dosage: 10 MG, UNK
  8. PRESERVISION /USA/ [Concomitant]
     Dosage: UNK

REACTIONS (3)
  - CONSTIPATION [None]
  - DRUG INEFFECTIVE [None]
  - PROSTATE CANCER [None]
